FAERS Safety Report 26132202 (Version 1)
Quarter: 2025Q4

REPORT INFORMATION
  Report Type: Spontaneous
  Country: US (occurrence: US)
  Receive Date: 20251208
  Receipt Date: 20251208
  Transmission Date: 20260118
  Serious: Yes (Death, Other)
  Sender: PFIZER
  Company Number: US-PFIZER INC-202500239263

PATIENT
  Age: 89 Year
  Sex: Female

DRUGS (1)
  1. IBRANCE [Suspect]
     Active Substance: PALBOCICLIB
     Dosage: 75 MG, CYCLIC,  21 DAYS, THEN 7 DAYS OFF
     Dates: start: 20250305, end: 20251005

REACTIONS (1)
  - Death [Fatal]

NARRATIVE: CASE EVENT DATE: 20251005
